FAERS Safety Report 13744884 (Version 1)
Quarter: 2017Q3

REPORT INFORMATION
  Report Type: Spontaneous
  Country: US (occurrence: US)
  Receive Date: 20170712
  Receipt Date: 20170712
  Transmission Date: 20171127
  Serious: No
  Sender: FDA-Public Use
  Company Number: US-PFIZER INC-2017302109

PATIENT
  Age: 65 Year
  Sex: Female
  Weight: 55 kg

DRUGS (3)
  1. GLUTEN [Suspect]
     Active Substance: WHEAT GLUTEN
     Dosage: UNK
     Dates: start: 20170706, end: 20170706
  2. ADVIL PM [Suspect]
     Active Substance: DIPHENHYDRAMINE CITRATE\IBUPROFEN
     Indication: ARTHRALGIA
  3. ADVIL PM [Suspect]
     Active Substance: DIPHENHYDRAMINE CITRATE\IBUPROFEN
     Indication: INSOMNIA
     Dosage: 2 DF, 1X/DAY (ONCE AT NIGHT) (LIQUIGEL=200MG IBUPROFEN, 25MG DIPHENHYDRAMINE HYDROCHLORIDE)
     Dates: start: 20170706, end: 20170706

REACTIONS (10)
  - Flushing [Not Recovered/Not Resolved]
  - Expired product administered [Unknown]
  - Flatulence [Not Recovered/Not Resolved]
  - Vomiting [Recovered/Resolved]
  - Abdominal distension [Not Recovered/Not Resolved]
  - Feeling abnormal [Unknown]
  - Reaction to excipient [Not Recovered/Not Resolved]
  - Dizziness [Not Recovered/Not Resolved]
  - Ataxia [Not Recovered/Not Resolved]
  - Chest pain [Not Recovered/Not Resolved]

NARRATIVE: CASE EVENT DATE: 20170707
